FAERS Safety Report 21305223 (Version 1)
Quarter: 2022Q3

REPORT INFORMATION
  Report Type: Report from Study
  Country: FR (occurrence: FR)
  Receive Date: 20220907
  Receipt Date: 20220907
  Transmission Date: 20221027
  Serious: Yes (Death, Hospitalization)
  Sender: FDA-Public Use
  Company Number: FR-BAYER-2022A109491

PATIENT
  Age: 82 Year
  Sex: Male

DRUGS (1)
  1. RIVAROXABAN [Suspect]
     Active Substance: RIVAROXABAN
     Indication: Product used for unknown indication
     Dosage: 15 MG
     Route: 048
     Dates: start: 201412

REACTIONS (5)
  - Haemorrhagic stroke [Fatal]
  - Neurological decompensation [Fatal]
  - Bronchitis [Fatal]
  - Acute respiratory failure [Not Recovered/Not Resolved]
  - Traumatic haematoma [Not Recovered/Not Resolved]

NARRATIVE: CASE EVENT DATE: 20220422
